FAERS Safety Report 13917450 (Version 1)
Quarter: 2017Q3

REPORT INFORMATION
  Report Type: Spontaneous
  Country: ES (occurrence: ES)
  Receive Date: 20170829
  Receipt Date: 20170829
  Transmission Date: 20171127
  Serious: Yes (Other)
  Sender: FDA-Public Use
  Company Number: ES-PFIZER INC-2017368628

PATIENT
  Age: 71 Year
  Sex: Male
  Weight: 107 kg

DRUGS (2)
  1. DALACIN [Suspect]
     Active Substance: CLINDAMYCIN
     Indication: CELLULITIS
     Dosage: 600 MG, 3X/DAY
     Route: 048
     Dates: start: 20170818, end: 20170819
  2. CLINDAMICINA [Concomitant]
     Active Substance: CLINDAMYCIN HYDROCHLORIDE
     Dosage: UNK, SINGLE
     Route: 042
     Dates: start: 20170818, end: 20170818

REACTIONS (5)
  - Rash [Recovering/Resolving]
  - Angioedema [Recovering/Resolving]
  - Face oedema [Recovering/Resolving]
  - Tongue oedema [Recovering/Resolving]
  - Palatal oedema [Recovering/Resolving]

NARRATIVE: CASE EVENT DATE: 20170818
